FAERS Safety Report 7931164-0 (Version None)
Quarter: 2011Q4

REPORT INFORMATION
  Report Type: 
  Country: None (occurrence: None)
  Receive Date: 20111118
  Receipt Date: 20111118
  Transmission Date: 20120403
  Serious: Yes (Hospitalization)
  Sender: FDA-Public Use
  Company Number: None

PATIENT
  Sex: Female
  Weight: 78.0187 kg

DRUGS (11)
  1. BENDAMUSTINE [Suspect]
     Indication: LUNG NEOPLASM MALIGNANT
     Dosage: ON DAY 1 AND DZ OF 21 DAY CYCLE LAST DOSE WAS AT 115MG
     Dates: start: 20110912
  2. BENDAMUSTINE [Suspect]
     Indication: LUNG NEOPLASM MALIGNANT
     Dosage: ON DAY 1 AND DZ OF 21 DAY CYCLE LAST DOSE WAS AT 115MG
     Dates: start: 20110501, end: 20110901
  3. BENICAR [Concomitant]
  4. NEULASTA [Concomitant]
  5. MEGACE [Concomitant]
  6. LEVOCETIRIZINE DIHYDRAOCHLORIDE [Concomitant]
  7. LIPITOR [Concomitant]
  8. COMPAZINE [Concomitant]
  9. XANAX [Concomitant]
  10. POTASSIUM CHLORIDE [Concomitant]
  11. LORCET-HD [Concomitant]

REACTIONS (1)
  - TRANSFUSION [None]
